FAERS Safety Report 4341526-9 (Version None)
Quarter: 2004Q2

REPORT INFORMATION
  Report Type: 
  Country: None (occurrence: None)
  Receive Date: 20040415
  Receipt Date: 20040329
  Transmission Date: 20050107
  Serious: Yes (Hospitalization)
  Sender: FDA-Public Use
  Company Number: EWC040338551

PATIENT
  Age: 23 Year
  Sex: Male

DRUGS (5)
  1. ZYPREXA [Suspect]
     Indication: SCHIZOPHRENIA, PARANOID TYPE
     Dosage: 20 MG DAY
     Dates: start: 20030306, end: 20040306
  2. LORAZEPAM [Concomitant]
  3. AULIN (NIMESULIDE) [Concomitant]
  4. ZITHROMAX [Concomitant]
  5. TACHIFLUDEC [Concomitant]

REACTIONS (12)
  - DRUG INEFFECTIVE [None]
  - GENERAL PHYSICAL HEALTH DETERIORATION [None]
  - GENERALISED OEDEMA [None]
  - HERPES SIMPLEX SEROLOGY POSITIVE [None]
  - OESOPHAGITIS [None]
  - PHOTOPHOBIA [None]
  - PSYCHOTIC DISORDER [None]
  - STEVENS-JOHNSON SYNDROME [None]
  - STOMATITIS [None]
  - TONSILLITIS [None]
  - VIRUS SEROLOGY TEST POSITIVE [None]
  - WEIGHT INCREASED [None]
